FAERS Safety Report 9006523 (Version 3)
Quarter: 2013Q3

REPORT INFORMATION
  Report Type: Spontaneous
  Country: US (occurrence: US)
  Receive Date: 20130110
  Receipt Date: 20130702
  Transmission Date: 20140515
  Serious: Yes (Hospitalization, Other)
  Sender: FDA-Public Use
  Company Number: US-BAYER-2013-002675

PATIENT
  Age: 40 Year
  Sex: Female
  Weight: 104.31 kg

DRUGS (12)
  1. YASMIN [Suspect]
     Dosage: UNK
     Dates: start: 200210, end: 2011
  2. EFFEXOR [Concomitant]
  3. AMOXIL [Concomitant]
  4. VIOXX [Concomitant]
  5. LORTAB [Concomitant]
  6. KEFLEX [Concomitant]
  7. AMOXIL [Concomitant]
  8. SPIRONOLACTONE [Concomitant]
     Indication: DIURETIC THERAPY
     Dosage: UNK
     Dates: start: 2002
  9. PREDNISONE [Concomitant]
     Indication: ASTHMA
     Dosage: AS NEEDED
  10. FLUTICASONE [Concomitant]
     Indication: ASTHMA
     Dosage: AS NEEDED
  11. IBUPROFEN [Concomitant]
     Dosage: AS NEEDED
  12. WELLBUTRIN [Concomitant]
     Indication: DEPRESSION
     Dosage: UNK
     Dates: start: 2003

REACTIONS (9)
  - Venous thrombosis limb [None]
  - Injury [None]
  - Pain [None]
  - Emotional distress [None]
  - General physical health deterioration [None]
  - Anxiety [None]
  - Pain [None]
  - Thrombophlebitis superficial [None]
  - Deep vein thrombosis [Recovered/Resolved]
